FAERS Safety Report 16136070 (Version 1)
Quarter: 2019Q1

REPORT INFORMATION
  Report Type: Spontaneous
  Country: US (occurrence: US)
  Receive Date: 20190329
  Receipt Date: 20190329
  Transmission Date: 20190418
  Serious: No
  Sender: FDA-Public Use
  Company Number: US-ASTRAZENECA-2019SE37000

PATIENT
  Sex: Female
  Weight: 84.4 kg

DRUGS (1)
  1. BYDUREON BCISE [Suspect]
     Active Substance: EXENATIDE
     Indication: INSULIN-REQUIRING TYPE 2 DIABETES MELLITUS
     Route: 058

REACTIONS (4)
  - Needle issue [Unknown]
  - Circumstance or information capable of leading to medication error [Recovered/Resolved]
  - Injection site mass [Recovering/Resolving]
  - Injection site bruising [Unknown]
